FAERS Safety Report 8300072-8 (Version None)
Quarter: 2012Q2

REPORT INFORMATION
  Report Type: 
  Country: None (occurrence: None)
  Receive Date: 20120420
  Receipt Date: 20120413
  Transmission Date: 20120825
  Serious: Yes (Other)
  Sender: FDA-Public Use
  Company Number: US-PFIZER INC-2012096130

PATIENT
  Sex: Male

DRUGS (1)
  1. CHANTIX [Suspect]
     Indication: SMOKING CESSATION THERAPY
     Dosage: 0.5 MG, UNK
     Dates: start: 20111219

REACTIONS (5)
  - FEELING ABNORMAL [None]
  - NIGHTMARE [None]
  - SCREAMING [None]
  - CRYING [None]
  - SUICIDAL IDEATION [None]
